FAERS Safety Report 6176294-1 (Version None)
Quarter: 2009Q2

REPORT INFORMATION
  Report Type: 
  Country: None (occurrence: None)
  Receive Date: 20090501
  Receipt Date: 20080617
  Transmission Date: 20091009
  Serious: Yes (Death)
  Sender: FDA-Public Use
  Company Number: FR-ALEXION-A200800118

PATIENT

DRUGS (2)
  1. SOLIRIS [Suspect]
     Indication: PAROXYSMAL NOCTURNAL HAEMOGLOBINURIA
     Dosage: UNK, SINGLE
     Route: 042
     Dates: start: 20070619, end: 20070619
  2. ORACILLIN                          /00001802/ [Concomitant]

REACTIONS (2)
  - PNEUMONIA [None]
  - SEPTIC SHOCK [None]
